FAERS Safety Report 4729341-5 (Version None)
Quarter: 2005Q3

REPORT INFORMATION
  Report Type: 
  Country: None (occurrence: None)
  Receive Date: 20050729
  Receipt Date: 20050610
  Transmission Date: 20060218
  Serious: Yes (Other)
  Sender: FDA-Public Use
  Company Number: PHBS2005JP08473

PATIENT
  Age: 38 Year
  Sex: Male

DRUGS (3)
  1. LAMISIL [Suspect]
     Indication: NAIL TINEA
     Dosage: 125 MG/D
     Route: 048
     Dates: start: 20040901, end: 20050301
  2. LAMISIL [Suspect]
     Dosage: 125 MG/D
     Route: 048
     Dates: start: 20050509, end: 20050610
  3. LAMISIL [Concomitant]
     Dosage: 1 G/D
     Route: 061
     Dates: start: 20050509

REACTIONS (2)
  - LENTICULAR OPACITIES [None]
  - RETINAL DEGENERATION [None]
